FAERS Safety Report 5950657-9 (Version None)
Quarter: 2008Q4

REPORT INFORMATION
  Report Type: 
  Country: None (occurrence: None)
  Receive Date: 20081022
  Receipt Date: 20080616
  Transmission Date: 20090506
  Serious: No
  Sender: FDA-Public Use
  Company Number: ALL1-2008-01786

PATIENT
  Age: 28 Year
  Sex: Male
  Weight: 94.3 kg

DRUGS (3)
  1. VYVANSE [Suspect]
     Indication: ATTENTION DEFICIT/HYPERACTIVITY DISORDER
     Dosage: 70 MG, 1X/DAY:QD,ORAL; 140 MG, 1X/DAY:QD, ORAL
     Route: 048
     Dates: start: 20080602, end: 20080611
  2. XANAX [Concomitant]
  3. PROZAC [Concomitant]

REACTIONS (4)
  - DISTURBANCE IN ATTENTION [None]
  - DRUG EFFECT DECREASED [None]
  - MOOD SWINGS [None]
  - OVERDOSE [None]
